FAERS Safety Report 10792481 (Version 1)
Quarter: 2015Q1

REPORT INFORMATION
  Report Type: Spontaneous
  Country: FR (occurrence: FR)
  Receive Date: 20150213
  Receipt Date: 20150213
  Transmission Date: 20150721
  Serious: Yes (Other)
  Sender: FDA-Public Use
  Company Number: FR-TEVA-539778ISR

PATIENT
  Age: 30 Year
  Sex: Female

DRUGS (1)
  1. LEELOO [Suspect]
     Active Substance: ETHINYL ESTRADIOL\LEVONORGESTREL
     Indication: CONTRACEPTION
     Dosage: STARTED AT THE END OF 2013 AT THE DOSAGE OF ONE TABLET FOR 21 DAYS OUT OF 28
     Route: 048
     Dates: start: 2013, end: 20150122

REACTIONS (2)
  - Pregnancy on oral contraceptive [Recovered/Resolved with Sequelae]
  - Abortion induced [Recovered/Resolved]

NARRATIVE: CASE EVENT DATE: 20141121
